FAERS Safety Report 6713415-3 (Version None)
Quarter: 2010Q2

REPORT INFORMATION
  Report Type: 
  Country: None (occurrence: None)
  Receive Date: 20100506
  Receipt Date: 20100429
  Transmission Date: 20101027
  Serious: Yes (Disabling)
  Sender: FDA-Public Use
  Company Number: US-B.I. PHARMACEUTICALS,INC./RIDGEFIELD-2010-BP-03088BP

PATIENT
  Sex: Female

DRUGS (10)
  1. TWYNSTA [Suspect]
     Indication: HYPERTENSION
     Route: 048
  2. TWYNSTA [Suspect]
     Indication: CARDIOVASCULAR EVENT PROPHYLAXIS
  3. PLAVIX [Concomitant]
  4. ASPIRIN [Concomitant]
  5. PRAVASTATIN [Concomitant]
  6. FUROSEMIDE [Concomitant]
  7. METOPROLOL [Concomitant]
  8. FISH OIL [Concomitant]
  9. IMDUR [Concomitant]
  10. ESOMEPRAZOLE [Concomitant]

REACTIONS (3)
  - ASTHENIA [None]
  - FATIGUE [None]
  - LETHARGY [None]
